FAERS Safety Report 4522190-2 (Version None)
Quarter: 2004Q4

REPORT INFORMATION
  Report Type: 
  Country: None (occurrence: None)
  Receive Date: 20041207
  Receipt Date: 20041124
  Transmission Date: 20050328
  Serious: Yes (Disabling)
  Sender: FDA-Public Use
  Company Number: 04H-163-0281797-00

PATIENT
  Age: 43 Year
  Sex: Male

DRUGS (2)
  1. GENTAMICIN SULFATE IN SODIUM CHLORIDE INJECTION (GENTAMICIN SULFATE/SO [Suspect]
     Indication: STAPHYLOCOCCAL INFECTION
     Dosage: DAILY, INTRAVENOUS
     Route: 042
     Dates: start: 20040820, end: 20040914
  2. COUMADIN [Concomitant]

REACTIONS (4)
  - BALANCE DISORDER [None]
  - DEAFNESS [None]
  - DIZZINESS [None]
  - TINNITUS [None]
